FAERS Safety Report 5230884-9 (Version None)
Quarter: 2007Q1

REPORT INFORMATION
  Report Type: 
  Country: None (occurrence: None)
  Receive Date: 20070206
  Receipt Date: 20070202
  Transmission Date: 20070707
  Serious: Yes (Other)
  Sender: FDA-Public Use
  Company Number: US-SANOFI-SYNTHELABO-A03200700854

PATIENT
  Age: 74 Year
  Sex: Male

DRUGS (2)
  1. ELOXATIN [Suspect]
     Indication: COLORECTAL CANCER
     Route: 042
     Dates: start: 20070125, end: 20070125
  2. XELODA [Concomitant]
     Dosage: UNK
     Route: 048

REACTIONS (2)
  - DYSAESTHESIA PHARYNX [None]
  - DYSPNOEA [None]
